FAERS Safety Report 17645568 (Version 1)
Quarter: 2020Q2

REPORT INFORMATION
  Report Type: Spontaneous
  Country: FR (occurrence: FR)
  Receive Date: 20200408
  Receipt Date: 20200408
  Transmission Date: 20200713
  Serious: Yes (Hospitalization)
  Sender: FDA-Public Use
  Company Number: FR-TEVA-2020-FR-1218637

PATIENT
  Age: 25 Year
  Sex: Male
  Weight: 85 kg

DRUGS (5)
  1. INORIAL [Concomitant]
     Active Substance: BILASTINE
  2. PREDNISONE. [Suspect]
     Active Substance: PREDNISONE
     Indication: DYSPHONIA
     Dosage: 90 MG
     Route: 048
     Dates: start: 20200306, end: 20200314
  3. NUROFEN 200 MG, CAPSULE MOLLE [Suspect]
     Active Substance: IBUPROFEN
     Indication: HEADACHE
     Route: 048
     Dates: start: 20200314, end: 20200314
  4. MONTELUKAST [Concomitant]
     Active Substance: MONTELUKAST SODIUM
  5. SYMBICORT [Concomitant]
     Active Substance: BUDESONIDE\FORMOTEROL FUMARATE DIHYDRATE

REACTIONS (2)
  - Infection [Recovering/Resolving]
  - Coronavirus infection [Recovering/Resolving]

NARRATIVE: CASE EVENT DATE: 20200314
